FAERS Safety Report 20757000 (Version 1)
Quarter: 2022Q2

REPORT INFORMATION
  Report Type: Spontaneous
  Country: US (occurrence: None)
  Receive Date: 20220427
  Receipt Date: 20220427
  Transmission Date: 20220721
  Serious: Yes (Hospitalization)
  Sender: FDA-Public Use
  Company Number: None

PATIENT
  Sex: Male
  Weight: 91.8 kg

DRUGS (1)
  1. CETUXIMAB [Suspect]
     Active Substance: CETUXIMAB
     Dates: end: 20201123

REACTIONS (13)
  - Palpitations [None]
  - Weight increased [None]
  - Oedema peripheral [None]
  - Insomnia [None]
  - Heart rate increased [None]
  - Atrial fibrillation [None]
  - Tachycardia [None]
  - Cardiac failure congestive [None]
  - Cardiomegaly [None]
  - Pulmonary venous hypertension [None]
  - Pleural effusion [None]
  - Hypervolaemia [None]
  - Cardiac failure [None]

NARRATIVE: CASE EVENT DATE: 20201203
